FAERS Safety Report 5248027-4 (Version None)
Quarter: 2007Q1

REPORT INFORMATION
  Report Type: 
  Country: None (occurrence: None)
  Receive Date: 20070222
  Receipt Date: 20070208
  Transmission Date: 20070707
  Serious: Yes (Other)
  Sender: FDA-Public Use
  Company Number: S07-ESP-00741-01

PATIENT
  Age: 65 Year
  Sex: Male

DRUGS (1)
  1. CITALOPRAM HYDROBROMIDE [Suspect]
     Dosage: 30 MG QD PO
     Route: 048
     Dates: start: 20070101

REACTIONS (1)
  - PROSTATIC SPECIFIC ANTIGEN INCREASED [None]
